FAERS Safety Report 12565817 (Version 1)
Quarter: 2016Q3

REPORT INFORMATION
  Report Type: Report from Study
  Country: BR (occurrence: BR)
  Receive Date: 20160718
  Receipt Date: 20160718
  Transmission Date: 20161109
  Serious: Yes (Other)
  Sender: FDA-Public Use
  Company Number: PHHY2016BR097032

PATIENT
  Sex: Female
  Weight: 80 kg

DRUGS (1)
  1. DIOVAN [Suspect]
     Active Substance: VALSARTAN
     Indication: HYPERTENSION
     Dosage: 1 DF, QD
     Route: 048

REACTIONS (5)
  - Metastatic malignant melanoma [Unknown]
  - Haemorrhage [Unknown]
  - Malaise [Unknown]
  - Depressed mood [Unknown]
  - Alopecia [Unknown]

NARRATIVE: CASE EVENT DATE: 2014
